FAERS Safety Report 12151173 (Version 2)
Quarter: 2016Q2

REPORT INFORMATION
  Report Type: Spontaneous
  Country: JP (occurrence: JP)
  Receive Date: 20160304
  Receipt Date: 20160413
  Transmission Date: 20160815
  Serious: Yes (Death, Hospitalization, Other)
  Sender: FDA-Public Use
  Company Number: JP-GILEAD-2016-0201133

PATIENT
  Age: 78 Year

DRUGS (1)
  1. HARVONI [Suspect]
     Active Substance: LEDIPASVIR\SOFOSBUVIR
     Indication: CHRONIC HEPATITIS C
     Dosage: 1 DF, QD
     Route: 048
     Dates: start: 20160215

REACTIONS (4)
  - Ascites [Unknown]
  - Death [Fatal]
  - Colitis ischaemic [Unknown]
  - Melaena [Unknown]

NARRATIVE: CASE EVENT DATE: 20160224
